FAERS Safety Report 9065674 (Version 1)
Quarter: 2013Q1

REPORT INFORMATION
  Report Type: Report from Study
  Country: US (occurrence: US)
  Receive Date: 20130131
  Receipt Date: 20130131
  Transmission Date: 20140127
  Serious: No
  Sender: FDA-Public Use
  Company Number: US-ABBOTT-12P-163-0895506-00

PATIENT
  Age: 29 Year
  Sex: Female
  Weight: 72.64 kg

DRUGS (18)
  1. HUMIRA [Suspect]
     Indication: PSORIATIC ARTHROPATHY
     Dates: start: 20110227, end: 20111122
  2. HUMIRA [Suspect]
     Indication: PSORIASIS
  3. FOLIC ACID [Concomitant]
     Indication: PRODUCT USED FOR UNKNOWN INDICATION
     Route: 048
     Dates: start: 20110227, end: 20110815
  4. PRENATAL VITAMINS [Concomitant]
     Indication: PRODUCT USED FOR UNKNOWN INDICATION
     Route: 048
     Dates: start: 20110227, end: 20111122
  5. FLEXERIL [Concomitant]
     Indication: PAIN
     Route: 048
     Dates: start: 20110227, end: 20111122
  6. PROVENTIL [Concomitant]
     Indication: ASTHMA
     Route: 055
     Dates: start: 20110227, end: 20111122
  7. TYLENOL [Concomitant]
     Indication: PAIN
     Route: 048
     Dates: start: 20110227, end: 20111122
  8. DULCOLAX [Concomitant]
     Indication: ABNORMAL FAECES
     Route: 048
     Dates: start: 20110227, end: 20111122
  9. TUMS [Concomitant]
     Indication: DYSPEPSIA
     Route: 048
     Dates: start: 20110227, end: 20110720
  10. COFFEE [Concomitant]
     Indication: PRODUCT USED FOR UNKNOWN INDICATION
     Dosage: 0.5 SERVING/DAY
     Route: 048
     Dates: start: 20110227, end: 20111122
  11. WINE [Concomitant]
     Indication: PRODUCT USED FOR UNKNOWN INDICATION
     Route: 048
     Dates: start: 20110315, end: 20110315
  12. CAFFEINE [Concomitant]
     Indication: PRODUCT USED FOR UNKNOWN INDICATION
     Dosage: REGULAR SODA
     Route: 048
     Dates: start: 20110601, end: 20111122
  13. BENADRYL [Concomitant]
     Indication: HYPERSENSITIVITY
     Route: 048
     Dates: start: 20110601, end: 20111122
  14. RANITIDINE HCL [Concomitant]
     Indication: DYSPEPSIA
     Dosage: 225MG 1 DAY
     Route: 048
     Dates: start: 20110721, end: 20111122
  15. FLUVIRIN [Concomitant]
     Indication: ANTIVIRAL PROPHYLAXIS
     Dosage: ONCE
     Dates: start: 20110924, end: 20110924
  16. ALBUTEROL [Concomitant]
     Indication: PRODUCT USED FOR UNKNOWN INDICATION
  17. TYLENOL ARTHRITIS [Concomitant]
     Indication: PRODUCT USED FOR UNKNOWN INDICATION
  18. MOTRIN [Concomitant]
     Indication: PRODUCT USED FOR UNKNOWN INDICATION

REACTIONS (6)
  - Pharyngitis streptococcal [Recovered/Resolved]
  - Sinusitis [Recovered/Resolved]
  - Pain [Unknown]
  - Dyspepsia [Unknown]
  - Hypersensitivity [Unknown]
  - Abnormal faeces [Unknown]
